FAERS Safety Report 4949577-8 (Version None)
Quarter: 2006Q1

REPORT INFORMATION
  Report Type: 
  Country: None (occurrence: None)
  Receive Date: 20060315
  Receipt Date: 20060223
  Transmission Date: 20060701
  Serious: Yes (Other)
  Sender: FDA-Public Use
  Company Number: US200602004641

PATIENT
  Age: 45 Year
  Sex: Female
  Weight: 146.9 kg

DRUGS (1)
  1. ZYPREXA [Suspect]
     Indication: DEPRESSION
     Dates: start: 20010705

REACTIONS (10)
  - ARRHYTHMIA [None]
  - ASTHMA [None]
  - BLOOD CHOLESTEROL ABNORMAL [None]
  - DIABETES MELLITUS NON-INSULIN-DEPENDENT [None]
  - HEPATIC ENZYME INCREASED [None]
  - LUNG DISORDER [None]
  - OBESITY [None]
  - OSTEOARTHRITIS [None]
  - SLEEP APNOEA SYNDROME [None]
  - WEIGHT INCREASED [None]
